FAERS Safety Report 8779745 (Version 1)
Quarter: 2012Q4

REPORT INFORMATION
  Report Type: 
  Country: US (occurrence: US)
  Receive Date: 20120912
  Receipt Date: 20120912
  Transmission Date: 20130627
  Serious: No
  Sender: FDA-Public Use
  Company Number: US-TEVA-341806USA

PATIENT
  Age: 74 Year
  Sex: Female
  Weight: 49.03 kg

DRUGS (1)
  1. QNASL [Suspect]
     Indication: RHINITIS ALLERGIC
     Route: 055
     Dates: start: 201205

REACTIONS (1)
  - Conjunctival haemorrhage [Not Recovered/Not Resolved]
